FAERS Safety Report 23981287 (Version 1)
Quarter: 2024Q2

REPORT INFORMATION
  Report Type: Spontaneous
  Country: FR (occurrence: FR)
  Receive Date: 20240617
  Receipt Date: 20240617
  Transmission Date: 20240716
  Serious: Yes (Death)
  Sender: FDA-Public Use
  Company Number: None

PATIENT
  Age: 3 Year
  Sex: Female
  Weight: 15.7 kg

DRUGS (3)
  1. BUSULFAN [Suspect]
     Active Substance: BUSULFAN
     Indication: Neuroblastoma
     Dosage: 1 FP, 1.2MG/KG (19MG) 4 TIMES PER DAY
     Dates: start: 20240326
  2. MELPHALAN [Suspect]
     Active Substance: MELPHALAN
     Indication: Neuroblastoma
     Dosage: 1 FP, 140MG/M2 ( 88MG) /D
     Dates: start: 20240326
  3. URSODIOL [Concomitant]
     Active Substance: URSODIOL
     Indication: Venoocclusive disease
     Dosage: 1FP, 140MG/M2 /D
     Dates: start: 20240326

REACTIONS (1)
  - Venoocclusive disease [Fatal]

NARRATIVE: CASE EVENT DATE: 20240415
